FAERS Safety Report 10049729 (Version 1)
Quarter: 2014Q1

REPORT INFORMATION
  Report Type: Spontaneous
  Country: GB (occurrence: None)
  Receive Date: 20140328
  Receipt Date: 20140328
  Transmission Date: 20141002
  Serious: Yes (Other)
  Sender: FDA-Public Use
  Company Number: AUR-APL-2014-03869

PATIENT
  Age: 68 Year
  Sex: Female
  Weight: 88.9 kg

DRUGS (5)
  1. MIRTAZAPINE [Suspect]
     Indication: INSOMNIA
     Dosage: 0.5 DOSAGE FORMS, ORAL
     Route: 048
     Dates: start: 20140130, end: 20140131
  2. ASPIRIN (ACETYLSALICYLIC ACID) [Concomitant]
  3. IBUPROFEN [Concomitant]
  4. NATRASLEEP (EUVEGAL-SAFT) [Concomitant]
  5. PARACETAMOL [Concomitant]

REACTIONS (7)
  - Agitation [None]
  - Psychotic disorder [None]
  - Muscle strain [None]
  - Impaired driving ability [None]
  - Self-injurious ideation [None]
  - Pain [None]
  - Arthralgia [None]
